FAERS Safety Report 4996805-9 (Version None)
Quarter: 2006Q2

REPORT INFORMATION
  Report Type: 
  Country: None (occurrence: None)
  Receive Date: 20060509
  Receipt Date: 20041108
  Transmission Date: 20061013
  Serious: Yes (Other)
  Sender: FDA-Public Use
  Company Number: US-MERCK-0411USA01425

PATIENT
  Sex: Male

DRUGS (4)
  1. ZETIA [Suspect]
     Indication: HYPERCHOLESTEROLAEMIA
     Route: 048
     Dates: start: 20021201, end: 20051201
  2. GLUCOVANCE [Concomitant]
     Route: 065
  3. COZAAR [Concomitant]
     Route: 048
  4. LUMIGAN [Concomitant]
     Route: 065

REACTIONS (15)
  - ADVERSE EVENT [None]
  - ASTHENIA [None]
  - CARDIAC DISORDER [None]
  - CONFUSIONAL STATE [None]
  - DIFFICULTY IN WALKING [None]
  - DISORIENTATION [None]
  - DIZZINESS [None]
  - DYSARTHRIA [None]
  - FALL [None]
  - FATIGUE [None]
  - HIP FRACTURE [None]
  - MENTAL STATUS CHANGES [None]
  - NAUSEA [None]
  - SPEECH DISORDER [None]
  - WRIST FRACTURE [None]
